FAERS Safety Report 18140358 (Version 1)
Quarter: 2020Q3

REPORT INFORMATION
  Report Type: Report from Study
  Country: ES (occurrence: ES)
  Receive Date: 20200812
  Receipt Date: 20200812
  Transmission Date: 20201103
  Serious: Yes (Other)
  Sender: FDA-Public Use
  Company Number: ES-TAKEDA-2020TUS016190

PATIENT
  Age: 69 Year
  Sex: Male
  Weight: 82 kg

DRUGS (14)
  1. ACYCLOVIR                          /00587301/ [Concomitant]
     Active Substance: ACYCLOVIR
     Indication: ANTIVIRAL PROPHYLAXIS
     Dosage: 800 MILLIGRAM, Q12H
     Route: 048
     Dates: start: 20171123
  2. IXAZOMIB [Suspect]
     Active Substance: IXAZOMIB
     Indication: CHRONIC GRAFT VERSUS HOST DISEASE
     Dosage: 4 MILLIGRAM, 1/WEEK
     Route: 048
     Dates: start: 20190829, end: 20200102
  3. TACROLIMUS. [Concomitant]
     Active Substance: TACROLIMUS
     Indication: IMMUNOSUPPRESSION
     Dosage: 3 MILLIGRAM
     Route: 048
     Dates: start: 20200227
  4. MONTELUKAST [Concomitant]
     Active Substance: MONTELUKAST SODIUM
     Indication: LUNG DISORDER
     Dosage: 10 MILLIGRAM, QD
     Route: 048
     Dates: start: 20200103
  5. FOLIC ACID. [Concomitant]
     Active Substance: FOLIC ACID
     Indication: PROPHYLAXIS
     Dosage: 5 MILLIGRAM, 3/WEEK
     Route: 048
     Dates: start: 20190509
  6. URSODEOXYCHOLIC ACID [Concomitant]
     Active Substance: URSODIOL
     Indication: PROPHYLAXIS
     Dosage: 300 MILLIGRAM, BID
     Route: 048
     Dates: start: 20190509
  7. URSODEOXYCHOLIC ACID [Concomitant]
     Active Substance: URSODIOL
     Dosage: 150 MILLIGRAM, QD
     Route: 048
     Dates: start: 20200130
  8. SYMBICORT [Concomitant]
     Active Substance: BUDESONIDE\FORMOTEROL FUMARATE DIHYDRATE
     Indication: LUNG DISORDER
     Dosage: UNK UNK, QD
     Route: 055
     Dates: start: 20200103
  9. ENALAPRIL [Concomitant]
     Active Substance: ENALAPRIL
     Indication: HYPERTENSION
     Dosage: 10 MILLIGRAM, QD
     Route: 048
     Dates: start: 20200227
  10. IXAZOMIB [Suspect]
     Active Substance: IXAZOMIB
     Dosage: 3 MILLIGRAM
     Route: 048
     Dates: start: 20200103, end: 20200521
  11. ARTIFICIAL TEARS                   /00222401/ [Concomitant]
     Active Substance: PROPYLENE GLYCOL
     Indication: EYE DISORDER
     Dosage: UNK UNK, QID
     Route: 047
     Dates: start: 20190820
  12. RAPAMYCIN [Concomitant]
     Active Substance: SIROLIMUS
     Indication: IMMUNOSUPPRESSION
     Dosage: 2 MILLIGRAM
     Route: 048
     Dates: start: 20200227
  13. SEPTRIN [Concomitant]
     Active Substance: SULFAMETHOXAZOLE\TRIMETHOPRIM
     Indication: ANTIFUNGAL PROPHYLAXIS
     Dosage: 960 MILLIGRAM
     Route: 048
     Dates: start: 20190509
  14. DUTASTERIDE. [Concomitant]
     Active Substance: DUTASTERIDE
     Indication: PROSTATE CANCER
     Dosage: 0.5 MILLIGRAM, QD
     Route: 048
     Dates: start: 20190509

REACTIONS (1)
  - Pericardial effusion [Recovered/Resolved]

NARRATIVE: CASE EVENT DATE: 20200326
